FAERS Safety Report 7395548-4 (Version None)
Quarter: 2011Q2

REPORT INFORMATION
  Report Type: 
  Country: None (occurrence: None)
  Receive Date: 20110405
  Receipt Date: 20110325
  Transmission Date: 20111010
  Serious: Yes (Other)
  Sender: FDA-Public Use
  Company Number: PHHY2010JP84527

PATIENT
  Sex: Male
  Weight: 85 kg

DRUGS (9)
  1. CALCIUM POLYSTYRENE SULFONATE [Concomitant]
     Dosage: 25 G DAILY
     Route: 048
     Dates: start: 20101018
  2. OLMETEC [Concomitant]
     Dosage: 60 MG DAILY
     Route: 048
     Dates: start: 20101018
  3. ADALAT CC [Concomitant]
     Dosage: 60 MG DAILY
     Route: 048
     Dates: start: 20101018
  4. LASIX [Concomitant]
     Dosage: 40 MG DAILY
     Dates: start: 20101018
  5. ALOSENN [Concomitant]
     Dosage: 0.5 G DAILY
     Route: 048
     Dates: start: 20101018
  6. ALDOMET [Concomitant]
     Dosage: 250 MG DAILY
     Route: 048
     Dates: start: 20101018
  7. THYRADIN S [Concomitant]
     Dosage: 50 UG DAILY
     Route: 048
     Dates: start: 20101018
  8. RASILEZ [Suspect]
     Indication: HYPERTENSION
     Dosage: 150 MG, DAILY
     Route: 048
     Dates: start: 20101018, end: 20101023
  9. DOXAZOSIN MESYLATE [Concomitant]
     Dosage: 1 MG DAILY
     Route: 048
     Dates: start: 20101018

REACTIONS (1)
  - BLOOD CREATINE PHOSPHOKINASE INCREASED [None]
